FAERS Safety Report 18875825 (Version 8)
Quarter: 2021Q2

REPORT INFORMATION
  Report Type: Report from Study
  Country: US (occurrence: US)
  Receive Date: 20210210
  Receipt Date: 20210629
  Transmission Date: 20210717
  Serious: No
  Sender: FDA-Public Use
  Company Number: US-B.I. PHARMACEUTICALS,INC./RIDGEFIELD-2021-BI-074251

PATIENT
  Age: 60 Year
  Sex: Female
  Weight: 86.18 kg

DRUGS (5)
  1. OFEV [Suspect]
     Active Substance: NINTEDANIB
     Indication: INTERSTITIAL LUNG DISEASE
     Dosage: 150 MGS BID
     Route: 048
     Dates: start: 20201214, end: 20210209
  2. OFEV [Suspect]
     Active Substance: NINTEDANIB
     Indication: SYSTEMIC SCLEROSIS PULMONARY
     Route: 048
     Dates: start: 20210210, end: 20210219
  3. OFEV [Suspect]
     Active Substance: NINTEDANIB
     Route: 048
     Dates: start: 20201214
  4. OFEV [Suspect]
     Active Substance: NINTEDANIB
     Indication: SYSTEMIC SCLERODERMA
     Route: 048
  5. OFEV [Suspect]
     Active Substance: NINTEDANIB
     Route: 048
     Dates: end: 20210308

REACTIONS (18)
  - Diarrhoea [Not Recovered/Not Resolved]
  - Nausea [Not Recovered/Not Resolved]
  - Muscle strain [Recovered/Resolved]
  - Headache [Not Recovered/Not Resolved]
  - Hepatic enzyme increased [Unknown]
  - Decreased appetite [Not Recovered/Not Resolved]
  - Lip erythema [Recovering/Resolving]
  - Skin discolouration [Unknown]
  - Pallor [Not Recovered/Not Resolved]
  - Sputum discoloured [Unknown]
  - Diarrhoea [Not Recovered/Not Resolved]
  - Retching [Recovered/Resolved]
  - Abnormal loss of weight [Not Recovered/Not Resolved]
  - Skin discolouration [Recovering/Resolving]
  - Nephrolithiasis [Unknown]
  - Skin discolouration [Not Recovered/Not Resolved]
  - Erythema [Not Recovered/Not Resolved]
  - Taste disorder [Not Recovered/Not Resolved]

NARRATIVE: CASE EVENT DATE: 202101
